FAERS Safety Report 26118058 (Version 1)
Quarter: 2025Q4

REPORT INFORMATION
  Report Type: Spontaneous
  Country: JP (occurrence: JP)
  Receive Date: 20251203
  Receipt Date: 20251203
  Transmission Date: 20260119
  Serious: Yes (Hospitalization)
  Sender: PFIZER
  Company Number: JP-PFIZER INC-202500232706

PATIENT
  Sex: Male

DRUGS (1)
  1. METHOTREXATE SODIUM [Suspect]
     Active Substance: METHOTREXATE SODIUM
     Dosage: UNK
     Route: 041

REACTIONS (7)
  - Fall [Unknown]
  - Delusion [Unknown]
  - Feeling abnormal [Unknown]
  - Bedridden [Unknown]
  - Gait inability [Unknown]
  - Visual impairment [Unknown]
  - Tremor [Unknown]
